FAERS Safety Report 8837733 (Version 1)
Quarter: 2012Q4

REPORT INFORMATION
  Report Type: 
  Country: US (occurrence: US)
  Receive Date: 20121012
  Receipt Date: 20121012
  Transmission Date: 20130627
  Serious: Yes (Hospitalization)
  Sender: FDA-Public Use
  Company Number: US-BAYER-2012-104692

PATIENT
  Age: 24 Year
  Sex: Female

DRUGS (6)
  1. BEYAZ [Suspect]
  2. NATAZIA [Suspect]
  3. SERTRALINE [Concomitant]
     Dosage: 100 mg, OM
     Route: 048
  4. TOPIRAMATE [Concomitant]
     Dosage: 25 mg, HS
     Route: 048
  5. ZOLOFT [Concomitant]
  6. OXYCODONE [Concomitant]

REACTIONS (1)
  - Pulmonary embolism [None]
